FAERS Safety Report 5951638-1 (Version None)
Quarter: 2008Q4

REPORT INFORMATION
  Report Type: 
  Country: None (occurrence: None)
  Receive Date: 20081113
  Receipt Date: 20081110
  Transmission Date: 20090506
  Serious: Yes (Other)
  Sender: FDA-Public Use
  Company Number: GB-TEVA-180299ISR

PATIENT
  Age: 10 Year

DRUGS (5)
  1. METHOTREXATE [Suspect]
     Indication: BONE MARROW TRANSPLANT
  2. ANTI-THYMOCYTE GLOBULIN NOS [Suspect]
     Indication: BONE MARROW TRANSPLANT
  3. CYCLOSPORINE [Suspect]
     Indication: BONE MARROW TRANSPLANT
  4. CYCLOPHOSPHAMIDE [Suspect]
     Indication: BONE MARROW TRANSPLANT
     Route: 042
  5. TREOSULFAN [Suspect]
     Indication: BONE MARROW TRANSPLANT
     Route: 042

REACTIONS (2)
  - MUCOSAL INFLAMMATION [None]
  - TOXIC ENCEPHALOPATHY [None]
